FAERS Safety Report 8915278 (Version 2)
Quarter: 2012Q4

REPORT INFORMATION
  Report Type: 
  Country: ES (occurrence: ES)
  Receive Date: 20121119
  Receipt Date: 20121211
  Transmission Date: 20130627
  Serious: Yes (Hospitalization)
  Sender: FDA-Public Use
  Company Number: ES-ELI_LILLY_AND_COMPANY-ES201211003192

PATIENT
  Sex: Female

DRUGS (4)
  1. FORSTEO [Suspect]
     Indication: OSTEOPOROSIS
     Dosage: 20 ug, qd
     Dates: start: 201211
  2. FORSTEO [Suspect]
     Dosage: 20 ug, qd
  3. OXYGEN [Concomitant]
  4. PREOTACT [Concomitant]
     Dosage: UNK
     Dates: start: 201105

REACTIONS (5)
  - Hypoxia [Unknown]
  - Respiratory disorder [Unknown]
  - Dyspnoea [Unknown]
  - Erythema [Unknown]
  - Face oedema [Unknown]
